FAERS Safety Report 8539487-1 (Version None)
Quarter: 2012Q3

REPORT INFORMATION
  Report Type: 
  Country: None (occurrence: None)
  Receive Date: 20120726
  Receipt Date: 20120723
  Transmission Date: 20120928
  Serious: Yes (Hospitalization, Disabling)
  Sender: FDA-Public Use
  Company Number: CO-US-EMD SERONO, INC.-7147245

PATIENT
  Sex: Male
  Weight: 52 kg

DRUGS (1)
  1. REBIF [Suspect]
     Indication: RELAPSING-REMITTING MULTIPLE SCLEROSIS
     Route: 058
     Dates: start: 20091002, end: 20120501

REACTIONS (2)
  - POLYARTERITIS NODOSA [None]
  - MULTIPLE SCLEROSIS RELAPSE [None]
